FAERS Safety Report 9731338 (Version 1)
Quarter: 2013Q4

REPORT INFORMATION
  Report Type: Report from Study
  Country: CA (occurrence: CA)
  Receive Date: 20131205
  Receipt Date: 20131205
  Transmission Date: 20140711
  Serious: Yes (Hospitalization)
  Sender: FDA-Public Use
  Company Number: CA-ROCHE-1312128

PATIENT
  Age: 63 Year
  Sex: Female
  Weight: 61.2 kg

DRUGS (16)
  1. KADCYLA [Suspect]
     Indication: HER-2 POSITIVE BREAST CANCER
     Route: 042
     Dates: start: 20131112
  2. TAMOXIFEN [Concomitant]
     Route: 048
  3. NAPROXEN [Concomitant]
     Route: 048
  4. FERROUS GLUCONATE [Concomitant]
     Route: 048
  5. ADVAIR [Concomitant]
     Dosage: 250MCG/50MG
     Route: 055
  6. RABEPRAZOLE [Concomitant]
     Route: 048
  7. LORAZEPAM [Concomitant]
     Dosage: 2 TABLETS
     Route: 060
  8. SYNTHROID [Concomitant]
     Route: 048
  9. SOFLAX (CANADA) [Concomitant]
     Route: 048
  10. COLACE [Concomitant]
     Dosage: 3 TABLETS
     Route: 048
  11. SENOKOT [Concomitant]
     Dosage: 3 TABLETS
     Route: 048
  12. LACTULOSE [Concomitant]
     Route: 048
  13. HYDROMORPHONE [Concomitant]
     Indication: ANALGESIC THERAPY
     Route: 048
  14. PROCHLORPERAZINE [Concomitant]
     Route: 048
  15. EFFEXOR [Concomitant]
     Route: 048
  16. VINORELBINE [Concomitant]
     Route: 042

REACTIONS (2)
  - White blood cell count decreased [Unknown]
  - Malaise [Unknown]
